FAERS Safety Report 9248666 (Version 1)
Quarter: 2013Q2

REPORT INFORMATION
  Report Type: Spontaneous
  Country: BR (occurrence: BR)
  Receive Date: 20130423
  Receipt Date: 20130423
  Transmission Date: 20140414
  Serious: Yes (Other)
  Sender: FDA-Public Use
  Company Number: BR-ROCHE-1148274

PATIENT
  Age: 61 Year
  Sex: Male
  Weight: 56 kg

DRUGS (3)
  1. RIVOTRIL [Suspect]
     Indication: PRODUCT USED FOR UNKNOWN INDICATION
     Dosage: DOSE INTERRUPTED
     Route: 065
  2. RIVOTRIL [Suspect]
     Dosage: RESUMED
     Route: 065
  3. DONAREN [Concomitant]
     Route: 065

REACTIONS (2)
  - Convulsion [Recovered/Resolved]
  - Medication error [Unknown]
